FAERS Safety Report 24561979 (Version 2)
Quarter: 2024Q4

REPORT INFORMATION
  Report Type: Spontaneous
  Country: US (occurrence: US)
  Receive Date: 20241029
  Receipt Date: 20241128
  Transmission Date: 20250115
  Serious: Yes (Other)
  Sender: STRIDES
  Company Number: US-STRIDES ARCOLAB LIMITED-2024SP013479

PATIENT
  Age: 75 Year
  Sex: Male

DRUGS (4)
  1. MEGESTROL ACETATE [Interacting]
     Active Substance: MEGESTROL ACETATE
     Indication: Decreased appetite
     Dosage: 80 MILLIGRAM, OD
     Route: 065
     Dates: start: 202306, end: 2023
  2. MEGESTROL ACETATE [Interacting]
     Active Substance: MEGESTROL ACETATE
     Indication: Weight decreased
  3. DULAGLUTIDE [Interacting]
     Active Substance: DULAGLUTIDE
     Indication: Type 2 diabetes mellitus
     Dosage: 1.5 MILLIGRAM, ONCE A WEEK
     Route: 065
     Dates: end: 2023
  4. GLIPIZIDE [Concomitant]
     Active Substance: GLIPIZIDE
     Indication: Type 2 diabetes mellitus
     Dosage: 5 MILLIGRAM, BID
     Route: 065
     Dates: end: 2023

REACTIONS (4)
  - Drug interaction [Recovered/Resolved]
  - Weight decreased [Recovered/Resolved]
  - Decreased appetite [Recovered/Resolved]
  - Hyperglycaemia [Recovered/Resolved]

NARRATIVE: CASE EVENT DATE: 20230101
